FAERS Safety Report 9404445 (Version 3)
Quarter: 2014Q3

REPORT INFORMATION
  Report Type: Spontaneous
  Country: US (occurrence: None)
  Receive Date: 20130711
  Receipt Date: 20140804
  Transmission Date: 20150326
  Serious: Yes (Death)
  Sender: FDA-Public Use
  Company Number: 1713747-2013-99917

PATIENT
  Age: 49 Year
  Sex: Male
  Weight: 126 kg

DRUGS (6)
  1. DIALYZER [Concomitant]
  2. 0.9% SODIUM CHLORIDE INJECTION, USP IN MINI-BAG PLUS CONTAINER [Suspect]
     Active Substance: SODIUM CHLORIDE
     Dates: start: 20110523
  3. GRANUFLO [Concomitant]
     Active Substance: ACETIC ACID\SODIUM ACETATE
  4. FRESENIUS HEMODIALYSIS MACHINE [Concomitant]
  5. BLOODLINES [Concomitant]
  6. NATURALYTE [Concomitant]
     Active Substance: ACETIC ACID\SODIUM ACETATE

REACTIONS (6)
  - Diarrhoea [None]
  - Cardiovascular disorder [None]
  - Procedural hypotension [None]
  - Arrhythmia [None]
  - Abdominal pain [None]
  - Unresponsive to stimuli [None]

NARRATIVE: CASE EVENT DATE: 20110525
